FAERS Safety Report 20764506 (Version 7)
Quarter: 2025Q1

REPORT INFORMATION
  Report Type: Report from Study
  Country: IE (occurrence: IE)
  Receive Date: 20220428
  Receipt Date: 20250213
  Transmission Date: 20250408
  Serious: No
  Sender: TAKEDA
  Company Number: IE-TAKEDA-2022TUS028413

PATIENT
  Sex: Female

DRUGS (4)
  1. VEDOLIZUMAB [Suspect]
     Active Substance: VEDOLIZUMAB
     Indication: Colitis ulcerative
  2. VEDOLIZUMAB [Suspect]
     Active Substance: VEDOLIZUMAB
  3. VEDOLIZUMAB [Suspect]
     Active Substance: VEDOLIZUMAB
  4. VEDOLIZUMAB [Suspect]
     Active Substance: VEDOLIZUMAB

REACTIONS (5)
  - Lymphadenopathy [Recovering/Resolving]
  - Frequent bowel movements [Unknown]
  - Fall [Unknown]
  - Weight decreased [Unknown]
  - Drug ineffective [Unknown]
